FAERS Safety Report 14823183 (Version 2)
Quarter: 2018Q3

REPORT INFORMATION
  Report Type: Spontaneous
  Country: US (occurrence: US)
  Receive Date: 20180427
  Receipt Date: 20180808
  Transmission Date: 20181010
  Serious: No
  Sender: FDA-Public Use
  Company Number: US-ACTELION-A-NJ2018-165738

PATIENT
  Age: 60 Year
  Sex: Female
  Weight: 117.91 kg

DRUGS (2)
  1. OFEV [Concomitant]
     Active Substance: NINTEDANIB
  2. TRACLEER [Suspect]
     Active Substance: BOSENTAN
     Indication: PULMONARY ARTERIAL HYPERTENSION
     Dosage: 125 MG, BID
     Route: 048

REACTIONS (3)
  - Malaise [Unknown]
  - Bone disorder [Unknown]
  - Cataract operation [Unknown]
